FAERS Safety Report 7643769-5 (Version None)
Quarter: 2011Q3

REPORT INFORMATION
  Report Type: 
  Country: None (occurrence: None)
  Receive Date: 20110729
  Receipt Date: 20110721
  Transmission Date: 20111222
  Serious: Yes (Hospitalization, Other)
  Sender: FDA-Public Use
  Company Number: US-US-EMD SERONO, INC.-231340J09USA

PATIENT
  Sex: Female
  Weight: 104 kg

DRUGS (11)
  1. ACCUPRIL [Concomitant]
     Indication: MYOCARDIAL INFARCTION
  2. COREG [Concomitant]
     Indication: MYOCARDIAL INFARCTION
  3. COREG [Concomitant]
     Indication: CARDIAC FAILURE CONGESTIVE
  4. QUINAPRIL HCL [Concomitant]
     Indication: HYPERTENSION
  5. REBIF [Suspect]
     Indication: MULTIPLE SCLEROSIS
     Dates: start: 20080801, end: 20081101
  6. REBIF [Suspect]
     Route: 058
     Dates: start: 20090501, end: 20090901
  7. FUROSEMIDE [Concomitant]
     Indication: MYOCARDIAL INFARCTION
  8. FUROSEMIDE [Concomitant]
     Indication: HYPERTENSION
  9. INSULIN [Concomitant]
     Indication: TYPE 2 DIABETES MELLITUS
  10. LIPITOR [Concomitant]
     Indication: BLOOD CHOLESTEROL INCREASED
  11. REBIF [Suspect]
     Route: 058
     Dates: start: 20101020, end: 20110410

REACTIONS (3)
  - STAPHYLOCOCCAL INFECTION [None]
  - BACK PAIN [None]
  - CYSTITIS [None]
